FAERS Safety Report 20185582 (Version 1)
Quarter: 2021Q4

REPORT INFORMATION
  Report Type: Spontaneous
  Country: RS (occurrence: RS)
  Receive Date: 20211215
  Receipt Date: 20211215
  Transmission Date: 20220303
  Serious: Yes (Disabling)
  Sender: FDA-Public Use
  Company Number: RS-009507513-2112SRB002673

PATIENT
  Age: 73 Year
  Sex: Male

DRUGS (6)
  1. KEYTRUDA [Suspect]
     Active Substance: PEMBROLIZUMAB
     Indication: Malignant melanoma
     Dosage: 100 MILLIGRAM
     Route: 041
     Dates: start: 202011, end: 20211008
  2. AMIODARONE HYDROCHLORIDE [Suspect]
     Active Substance: AMIODARONE HYDROCHLORIDE
     Indication: Arrhythmia
     Dosage: 200 MILLIGRAM
     Route: 048
     Dates: end: 20211103
  3. BISOPROLOL PHARMAS [Concomitant]
     Indication: Hypertension
     Dosage: 2.5 MILLIGRAM, QD
  4. EUTHYROX [Concomitant]
     Active Substance: LEVOTHYROXINE SODIUM
     Indication: Hypothyroidism
     Route: 048
  5. TAMSOL [Concomitant]
     Indication: Benign prostatic hyperplasia
     Route: 048
  6. ANDOL [Concomitant]
     Active Substance: ASPIRIN
     Indication: Arrhythmia
     Dosage: 100 MILLIGRAM
     Route: 048

REACTIONS (7)
  - Hypothyroidism [Recovering/Resolving]
  - Nausea [Recovering/Resolving]
  - Photophobia [Recovering/Resolving]
  - Nausea [Recovering/Resolving]
  - Muscular weakness [Recovering/Resolving]
  - Hallucination [Recovering/Resolving]
  - Encephalitis autoimmune [Recovering/Resolving]

NARRATIVE: CASE EVENT DATE: 20211001
